FAERS Safety Report 9401832 (Version 4)
Quarter: 2013Q3

REPORT INFORMATION
  Report Type: Spontaneous
  Country: US (occurrence: US)
  Receive Date: 20130716
  Receipt Date: 20130820
  Transmission Date: 20140515
  Serious: Yes (Life-Threatening, Hospitalization)
  Sender: FDA-Public Use
  Company Number: US-JNJFOC-20130705772

PATIENT
  Age: 77 Year
  Sex: Female
  Weight: 75.75 kg

DRUGS (16)
  1. XARELTO [Suspect]
     Indication: CEREBROVASCULAR ACCIDENT PROPHYLAXIS
     Dosage: APPROXIMATELY 12 TO 14 DAYS
     Route: 048
     Dates: start: 2013
  2. XARELTO [Suspect]
     Indication: ATRIAL FIBRILLATION
     Dosage: APPROXIMATELY 12 TO 14 DAYS
     Route: 048
     Dates: start: 2013
  3. AMIODARONE [Concomitant]
     Route: 065
  4. ALLOPURINOL [Concomitant]
     Route: 065
  5. NIACIN [Concomitant]
     Route: 065
  6. XANAX [Concomitant]
     Dosage: AS NEEDED
     Route: 065
  7. METOPROLOL [Concomitant]
     Route: 065
  8. METFORMIN [Concomitant]
     Route: 065
  9. CLONIDINE [Concomitant]
     Route: 065
  10. AMLODIPINE [Concomitant]
     Route: 065
  11. ROPINIROLE [Concomitant]
     Route: 065
  12. ATORVASTATIN [Concomitant]
     Route: 065
  13. FUROSEMIDE [Concomitant]
     Route: 065
  14. ASPIRIN [Concomitant]
     Route: 065
  15. TRAMADOL [Concomitant]
     Dosage: AS NEEDED
     Route: 065
  16. PANTOPRAZOLE [Concomitant]
     Route: 065

REACTIONS (4)
  - International normalised ratio increased [Recovered/Resolved]
  - Haematuria [Unknown]
  - Epistaxis [Unknown]
  - Haemoptysis [Unknown]
